FAERS Safety Report 6109514-X (Version None)
Quarter: 2009Q1

REPORT INFORMATION
  Report Type: 
  Country: None (occurrence: None)
  Receive Date: 20090310
  Receipt Date: 20090227
  Transmission Date: 20090719
  Serious: No
  Sender: FDA-Public Use
  Company Number: JP-ELI_LILLY_AND_COMPANY-JP200811002430

PATIENT
  Age: 95 Year
  Sex: Male

DRUGS (4)
  1. HUMALOG MIX 75/25 [Suspect]
     Indication: TYPE 2 DIABETES MELLITUS
     Dosage: 12 U, EACH MORNING
     Route: 058
  2. HUMALOG MIX 75/25 [Suspect]
     Dosage: 5 U, EACH EVENING
     Route: 058
  3. MAGMITT [Concomitant]
     Dosage: 500 MG, DAILY (1/D)
     Route: 048
     Dates: start: 20050801
  4. ALLELOCK [Concomitant]
     Indication: PRURITUS
     Dosage: 10 MG, DAILY (1/D)
     Route: 048
     Dates: start: 20070221, end: 20081219

REACTIONS (1)
  - INFECTION [None]
